FAERS Safety Report 23884110 (Version 1)
Quarter: 2024Q2

REPORT INFORMATION
  Report Type: Spontaneous
  Country: US (occurrence: None)
  Receive Date: 20240521
  Receipt Date: 20240521
  Transmission Date: 20240715
  Serious: Yes (Other)
  Sender: FDA-Public Use
  Company Number: None

PATIENT
  Age: 47 Year
  Sex: Female
  Weight: 75.5 kg

DRUGS (2)
  1. PROPOFOL 1% [Suspect]
     Active Substance: PROPOFOL
     Indication: Anaesthesia
     Route: 041
  2. METOCLOPRAMIDE [Suspect]
     Active Substance: METOCLOPRAMIDE
     Indication: Anaesthesia
     Route: 040
     Dates: start: 20240227, end: 20240227

REACTIONS (3)
  - Muscle spasms [None]
  - Muscle twitching [None]
  - Dystonia [None]

NARRATIVE: CASE EVENT DATE: 20240227
